FAERS Safety Report 6674854-2 (Version None)
Quarter: 2010Q1

REPORT INFORMATION
  Report Type: 
  Country: None (occurrence: None)
  Receive Date: 20100331
  Receipt Date: 20100128
  Transmission Date: 20100710
  Serious: Yes (Other)
  Sender: FDA-Public Use
  Company Number: 2010012550

PATIENT
  Age: 58 Year
  Sex: Male
  Weight: 49 kg

DRUGS (2)
  1. SUTENT [Suspect]
     Indication: GASTROINTESTINAL STROMAL TUMOUR
     Dosage: 37.5 MG, 1X/DAY, ORAL
     Route: 048
     Dates: start: 20080301
  2. SUTENT [Suspect]
     Indication: METASTASIS
     Dosage: 37.5 MG, 1X/DAY, ORAL
     Route: 048
     Dates: start: 20080301

REACTIONS (1)
  - NEUTROPENIA [None]
